FAERS Safety Report 24639048 (Version 2)
Quarter: 2025Q1

REPORT INFORMATION
  Report Type: Spontaneous
  Country: US (occurrence: US)
  Receive Date: 20241119
  Receipt Date: 20250105
  Transmission Date: 20250409
  Serious: No
  Sender: SANOFI AVENTIS
  Company Number: US-SA-2024SA332906

PATIENT
  Age: 57 Year
  Sex: Female

DRUGS (15)
  1. DUPIXENT [Suspect]
     Active Substance: DUPILUMAB
     Indication: Asthma
     Route: 058
     Dates: start: 20240917
  2. NUCALA [Concomitant]
     Active Substance: MEPOLIZUMAB
  3. NUCALA [Concomitant]
     Active Substance: MEPOLIZUMAB
  4. LOSARTAN [Concomitant]
     Active Substance: LOSARTAN
  5. CITALOPRAM [Concomitant]
     Active Substance: CITALOPRAM
     Route: 048
  6. ASPIRIN [Concomitant]
     Active Substance: ASPIRIN
  7. PREDNISONE [Concomitant]
     Active Substance: PREDNISONE
  8. AZITHROMYCIN [Concomitant]
     Active Substance: AZITHROMYCIN
  9. GABAPENTIN [Concomitant]
     Active Substance: GABAPENTIN
  10. LEVOTHYROXINE [Concomitant]
     Active Substance: LEVOTHYROXINE
  11. NAPROXEN [Concomitant]
     Active Substance: NAPROXEN
  12. TRAMADOL [Concomitant]
     Active Substance: TRAMADOL
  13. SINGULAIR [Concomitant]
     Active Substance: MONTELUKAST SODIUM
  14. ATORVASTATIN [Concomitant]
     Active Substance: ATORVASTATIN
  15. MELOXICAM [Concomitant]
     Active Substance: MELOXICAM

REACTIONS (1)
  - Asthma [Unknown]

NARRATIVE: CASE EVENT DATE: 20241108
